FAERS Safety Report 5463284-7 (Version None)
Quarter: 2007Q3

REPORT INFORMATION
  Report Type: 
  Country: None (occurrence: None)
  Receive Date: 20070920
  Receipt Date: 20070919
  Transmission Date: 20080115
  Serious: Yes (Other)
  Sender: FDA-Public Use
  Company Number: A0682582A

PATIENT
  Age: 34 Year
  Sex: Female

DRUGS (1)
  1. ALLI [Suspect]
     Dosage: 2CAP PER DAY
     Route: 048
     Dates: start: 20070917, end: 20070917

REACTIONS (3)
  - ABDOMINAL PAIN UPPER [None]
  - ANAL HAEMORRHAGE [None]
  - HEART RATE INCREASED [None]
